FAERS Safety Report 23938650 (Version 1)
Quarter: 2024Q2

REPORT INFORMATION
  Report Type: Spontaneous
  Country: FI (occurrence: None)
  Receive Date: 20240604
  Receipt Date: 20240604
  Transmission Date: 20240715
  Serious: Yes (Hospitalization, Other)
  Sender: FDA-Public Use
  Company Number: 2024A129776

PATIENT
  Age: 30 Year
  Sex: Male

DRUGS (15)
  1. QUETIAPINE FUMARATE [Suspect]
     Active Substance: QUETIAPINE FUMARATE
     Indication: Psychotic disorder
  2. QUETIAPINE FUMARATE [Suspect]
     Active Substance: QUETIAPINE FUMARATE
     Indication: Anxiety
  3. PROPRANOLOL [Suspect]
     Active Substance: PROPRANOLOL HYDROCHLORIDE
     Indication: Psychotic disorder
     Dosage: 20 MILLIGRAM IN 1 DAY
  4. OLANZAPINE [Suspect]
     Active Substance: OLANZAPINE
     Indication: Psychotic disorder
     Dosage: 5 MG
  5. OLANZAPINE [Suspect]
     Active Substance: OLANZAPINE
     Indication: Anxiety
     Dosage: 5 MG
  6. HALOPERIDOL [Suspect]
     Active Substance: HALOPERIDOL
     Indication: Psychotic disorder
  7. HALOPERIDOL [Suspect]
     Active Substance: HALOPERIDOL
     Indication: Anxiety
  8. LEVOMEPROMAZINE [Suspect]
     Active Substance: LEVOMEPROMAZINE
     Indication: Anxiety
     Dosage: 100 MILLIGRAM IN 1 DAY
  9. LEVOMEPROMAZINE [Suspect]
     Active Substance: LEVOMEPROMAZINE
     Indication: Psychotic disorder
     Dosage: 100 MILLIGRAM IN 1 DAY
  10. BIPERIDEN [Suspect]
     Active Substance: BIPERIDEN
     Indication: Psychotic disorder
     Dosage: 2 MILLIGRAM IN 1 DAY
  11. BIPERIDEN [Suspect]
     Active Substance: BIPERIDEN
     Indication: Anxiety
     Dosage: 2 MILLIGRAM IN 1 DAY
  12. RISPERIDONE [Suspect]
     Active Substance: RISPERIDONE
     Indication: Psychotic disorder
     Dosage: 6 MILLIGRAM IN 1 DAY
  13. RISPERIDONE [Suspect]
     Active Substance: RISPERIDONE
     Indication: Anxiety
     Dosage: 6 MILLIGRAM IN 1 DAY
  14. OXAZEPAM [Suspect]
     Active Substance: OXAZEPAM
     Indication: Psychotic disorder
  15. OXAZEPAM [Suspect]
     Active Substance: OXAZEPAM
     Indication: Anxiety

REACTIONS (3)
  - Hepatic enzyme increased [Unknown]
  - Spasmodic dysphonia [Recovered/Resolved]
  - Therapeutic product effect incomplete [Unknown]
